FAERS Safety Report 18587813 (Version 1)
Quarter: 2020Q4

REPORT INFORMATION
  Report Type: Spontaneous
  Country: GB (occurrence: GB)
  Receive Date: 20201207
  Receipt Date: 20201207
  Transmission Date: 20210114
  Serious: Yes (Other)
  Sender: FDA-Public Use
  Company Number: GB-TEVA-2020-GB-1854688

PATIENT
  Age: 21 Year
  Sex: Male
  Weight: 88 kg

DRUGS (1)
  1. PROPRANOLOL HYDROCHLORIDE. [Suspect]
     Active Substance: PROPRANOLOL HYDROCHLORIDE
     Indication: PANIC ATTACK
     Dosage: 120MILLIGRAM
     Route: 048
     Dates: start: 20070716, end: 20071030

REACTIONS (13)
  - Dyspnoea [Not Recovered/Not Resolved]
  - Confusional state [Unknown]
  - Agitation [Unknown]
  - Heart rate decreased [Not Recovered/Not Resolved]
  - Dizziness [Not Recovered/Not Resolved]
  - Chest pain [Unknown]
  - Palpitations [Not Recovered/Not Resolved]
  - Exercise tolerance decreased [Unknown]
  - Asthenia [Not Recovered/Not Resolved]
  - Sinus bradycardia [Unknown]
  - Feeling abnormal [Unknown]
  - Fatigue [Not Recovered/Not Resolved]
  - Atrioventricular conduction time shortened [Unknown]

NARRATIVE: CASE EVENT DATE: 20070725
